FAERS Safety Report 8102477-7 (Version None)
Quarter: 2012Q1

REPORT INFORMATION
  Report Type: 
  Country: None (occurrence: None)
  Receive Date: 20120201
  Receipt Date: 20120124
  Transmission Date: 20120608
  Serious: Yes (Hospitalization, Other)
  Sender: FDA-Public Use
  Company Number: US-ELI_LILLY_AND_COMPANY-US201201008316

PATIENT
  Sex: Female

DRUGS (9)
  1. NAPROXEN (ALEVE) [Concomitant]
  2. ANTABUSE [Concomitant]
  3. CYMBALTA [Suspect]
     Dosage: 80 MG, UNK
     Dates: start: 20110901, end: 20111101
  4. CELEBREX [Concomitant]
  5. AMLODIPINE BESYLATE [Concomitant]
  6. OMEPRAZOLE [Concomitant]
  7. CYMBALTA [Suspect]
     Indication: DEPRESSION
     Dosage: 40 MG, QD
     Dates: start: 20110501, end: 20110901
  8. OXYCODONE HCL [Concomitant]
  9. CYMBALTA [Suspect]
     Dosage: 120 MG, QD
     Dates: start: 20111101

REACTIONS (9)
  - FALL [None]
  - URTICARIA [None]
  - WRIST FRACTURE [None]
  - ALCOHOL ABUSE [None]
  - DEPRESSION [None]
  - LACERATION [None]
  - HAND FRACTURE [None]
  - PAIN [None]
  - RASH [None]
